FAERS Safety Report 15288956 (Version 1)
Quarter: 2018Q3

REPORT INFORMATION
  Report Type: Report from Study
  Country: CA (occurrence: CA)
  Receive Date: 20180817
  Receipt Date: 20180817
  Transmission Date: 20181010
  Serious: Yes (Death, Other)
  Sender: FDA-Public Use
  Company Number: PHHY2018CA068337

PATIENT
  Age: 52 Year
  Sex: Male

DRUGS (1)
  1. JADENU [Suspect]
     Active Substance: DEFERASIROX
     Indication: MYELODYSPLASTIC SYNDROME
     Dosage: 900 MG, QD
     Route: 048
     Dates: start: 20180405

REACTIONS (5)
  - Abdominal pain upper [Recovered/Resolved]
  - Acute myeloid leukaemia [Unknown]
  - Feeling abnormal [Unknown]
  - Death [Fatal]
  - Nausea [Recovered/Resolved]

NARRATIVE: CASE EVENT DATE: 20180405
